FAERS Safety Report 5136716-1 (Version None)
Quarter: 2006Q4

REPORT INFORMATION
  Report Type: 
  Country: None (occurrence: None)
  Receive Date: 20061023
  Receipt Date: 20030206
  Transmission Date: 20070319
  Serious: Yes (Death, Hospitalization)
  Sender: FDA-Public Use
  Company Number: S03-AUS-03445-01

PATIENT
  Age: 79 Year
  Sex: Male

DRUGS (9)
  1. MEMANTINE HCL [Suspect]
     Indication: DEMENTIA ALZHEIMER'S TYPE
     Dosage: 10 MG QD PO
     Route: 048
     Dates: start: 20021010, end: 20021224
  2. FLIXOTIDE [Concomitant]
  3. ATROVENT [Concomitant]
  4. CEPHALEXIN [Concomitant]
  5. PREDNISONE TAB [Concomitant]
  6. RISPERDAL [Concomitant]
  7. PANTOPRAZOLE SODIUM [Concomitant]
  8. VENTOLIN [Concomitant]
  9. MORPHINE [Concomitant]

REACTIONS (1)
  - PNEUMONIA [None]
